FAERS Safety Report 8056422-3 (Version None)
Quarter: 2012Q1

REPORT INFORMATION
  Report Type: 
  Country: None (occurrence: None)
  Receive Date: 20120119
  Receipt Date: 20120112
  Transmission Date: 20120608
  Serious: Yes (Hospitalization, Disabling)
  Sender: FDA-Public Use
  Company Number: US-MERCK-1108USA01139

PATIENT
  Age: 57 Year
  Sex: Female

DRUGS (3)
  1. FOSAMAX [Suspect]
     Route: 048
     Dates: start: 20080301, end: 20100101
  2. FOSAMAX [Suspect]
     Indication: OSTEOPOROSIS
     Route: 048
     Dates: start: 19950101, end: 20080101
  3. CALCIUM (UNSPECIFIED) [Concomitant]
     Route: 065

REACTIONS (14)
  - FEMUR FRACTURE [None]
  - MOOD ALTERED [None]
  - HYPOTHYROIDISM [None]
  - HYPERLIPIDAEMIA [None]
  - BENIGN BONE NEOPLASM [None]
  - AORTIC STENOSIS [None]
  - SYNOVIAL CYST [None]
  - HAEMATURIA [None]
  - MITRAL VALVE PROLAPSE [None]
  - HYPERTENSION [None]
  - THROMBOSIS [None]
  - ANAEMIA POSTOPERATIVE [None]
  - SINUS TACHYCARDIA [None]
  - MITRAL VALVE INCOMPETENCE [None]
